FAERS Safety Report 11863113 (Version 2)
Quarter: 2016Q1

REPORT INFORMATION
  Report Type: Report from Study
  Country: BR (occurrence: BR)
  Receive Date: 20151223
  Receipt Date: 20160112
  Transmission Date: 20160526
  Serious: Yes (Hospitalization)
  Sender: FDA-Public Use
  Company Number: PHHY2015BR166652

PATIENT
  Age: 36 Year
  Sex: Female
  Weight: 42 kg

DRUGS (1)
  1. GILENYA [Suspect]
     Active Substance: FINGOLIMOD HYDROCHLORIDE
     Indication: MULTIPLE SCLEROSIS
     Dosage: 0.5 MG, QD
     Route: 048
     Dates: start: 20151207

REACTIONS (12)
  - Seizure [Recovered/Resolved]
  - Salivary hypersecretion [Unknown]
  - Amnesia [Recovered/Resolved]
  - Muscle spasticity [Unknown]
  - Somnolence [Unknown]
  - Asthenia [Unknown]
  - Syncope [Unknown]
  - Extremity contracture [Unknown]
  - Vomiting [Recovered/Resolved]
  - Pallor [Unknown]
  - Musculoskeletal stiffness [Unknown]
  - Head discomfort [Not Recovered/Not Resolved]

NARRATIVE: CASE EVENT DATE: 20151215
